FAERS Safety Report 4968352-1 (Version None)
Quarter: 2006Q1

REPORT INFORMATION
  Report Type: 
  Country: None (occurrence: None)
  Receive Date: 20060201
  Receipt Date: 20051229
  Transmission Date: 20060701
  Serious: No
  Sender: FDA-Public Use
  Company Number: 2005PV006358

PATIENT
  Age: 59 Year
  Sex: Female
  Weight: 80.7403 kg

DRUGS (5)
  1. BYETTA [Suspect]
     Indication: DIABETES MELLITUS NON-INSULIN-DEPENDENT
     Dosage: 5 MCG;SC
     Route: 058
     Dates: start: 20051201, end: 20051211
  2. GLUCOPHAGE [Concomitant]
  3. GLUCOTROL [Concomitant]
  4. GLUCOVANCE [Concomitant]
  5. PLAVIX [Concomitant]

REACTIONS (3)
  - EPISTAXIS [None]
  - NASAL ULCER [None]
  - RHINORRHOEA [None]
